FAERS Safety Report 13425360 (Version 1)
Quarter: 2017Q2

REPORT INFORMATION
  Report Type: Other
  Country: US (occurrence: US)
  Receive Date: 20170411
  Receipt Date: 20170411
  Transmission Date: 20170830
  Serious: Yes (Life-Threatening, Hospitalization)
  Sender: FDA-Public Use
  Company Number: US-ORCHID HEALTHCARE-1065255

PATIENT
  Age: 17 Year
  Sex: Male

DRUGS (3)
  1. METOPROLOL. [Suspect]
     Active Substance: METOPROLOL
     Route: 065
  2. CAFFEINE. [Suspect]
     Active Substance: CAFFEINE
     Route: 065
  3. AMLODIPINE BESYLATE. [Suspect]
     Active Substance: AMLODIPINE BESYLATE
     Route: 065

REACTIONS (14)
  - Cardiac arrest [Recovering/Resolving]
  - Intentional overdose [Recovering/Resolving]
  - Hypotension [Recovering/Resolving]
  - Blood pressure increased [Recovering/Resolving]
  - Blood glucose increased [Recovering/Resolving]
  - Gait disturbance [Recovering/Resolving]
  - Circulatory collapse [Recovering/Resolving]
  - Dysarthria [Recovering/Resolving]
  - Lethargy [Recovering/Resolving]
  - Electrocardiogram QT prolonged [Recovering/Resolving]
  - Blood creatinine increased [Recovering/Resolving]
  - Blood lactic acid increased [Recovering/Resolving]
  - Suicide attempt [Recovering/Resolving]
  - Atrioventricular block first degree [Recovering/Resolving]
